FAERS Safety Report 18263300 (Version 8)
Quarter: 2021Q3

REPORT INFORMATION
  Report Type: Report from Study
  Country: US (occurrence: US)
  Receive Date: 20200914
  Receipt Date: 20210927
  Transmission Date: 20211014
  Serious: Yes (Other)
  Sender: FDA-Public Use
  Company Number: US-SHIRE-US202028891

PATIENT
  Sex: Female
  Weight: 90 kg

DRUGS (41)
  1. VENTOLIN [Concomitant]
     Active Substance: ALBUTEROL SULFATE
  2. METHOCARBAMOL. [Concomitant]
     Active Substance: METHOCARBAMOL
  3. LOSARTAN. [Concomitant]
     Active Substance: LOSARTAN
  4. OZEMPIC [Concomitant]
     Active Substance: SEMAGLUTIDE
  5. DULOXETINE. [Concomitant]
     Active Substance: DULOXETINE
  6. PANTOPRAZOLE [Concomitant]
     Active Substance: PANTOPRAZOLE
  7. ALBUTEROL [SALBUTAMOL] [Concomitant]
     Active Substance: ALBUTEROL
  8. CLONAZEPAM. [Concomitant]
     Active Substance: CLONAZEPAM
  9. GABAPENTIN. [Concomitant]
     Active Substance: GABAPENTIN
  10. EPINEPHRINE. [Concomitant]
     Active Substance: EPINEPHRINE
  11. LEVEMIR [Concomitant]
     Active Substance: INSULIN DETEMIR
  12. IMIQUIMOD. [Concomitant]
     Active Substance: IMIQUIMOD
  13. MULTIPLE VITAMINS [Concomitant]
     Active Substance: VITAMINS
  14. LEVOTHYROXINE. [Concomitant]
     Active Substance: LEVOTHYROXINE
  15. MIRTAZAPINE. [Concomitant]
     Active Substance: MIRTAZAPINE
  16. BIOTIN [Concomitant]
     Active Substance: BIOTIN
  17. MONTELUKAST [Concomitant]
     Active Substance: MONTELUKAST SODIUM
  18. TRAMADOL. [Concomitant]
     Active Substance: TRAMADOL
  19. ANORO [Concomitant]
     Active Substance: UMECLIDINIUM BROMIDE\VILANTEROL TRIFENATATE
  20. HUMALOG [Concomitant]
     Active Substance: INSULIN LISPRO
  21. VITAMIN D3 [Concomitant]
     Active Substance: CHOLECALCIFEROL
  22. MULTIVITAMIN + MINERAL [Concomitant]
     Active Substance: MINERALS\VITAMINS
  23. HUMAN NORMAL IMMUNOGLOBULIN; LIQUID [Suspect]
     Active Substance: HUMAN IMMUNOGLOBULIN G
     Indication: IMMUNODEFICIENCY COMMON VARIABLE
     Dosage: 45 GRAM, Q3WEEKS
     Route: 042
     Dates: start: 20121206
  24. TYLENOL [Concomitant]
     Active Substance: ACETAMINOPHEN
  25. TRIAMTERENE AND HYDROCHLOROTHIAZIDE [Concomitant]
     Active Substance: HYDROCHLOROTHIAZIDE\TRIAMTERENE
  26. HUMALOG JUNIOR KWIKPEN [Concomitant]
     Active Substance: INSULIN LISPRO
  27. ACETAMINOPHEN. [Concomitant]
     Active Substance: ACETAMINOPHEN
  28. OXYGEN. [Concomitant]
     Active Substance: OXYGEN
  29. METOCLOPRAMIDE. [Concomitant]
     Active Substance: METOCLOPRAMIDE
  30. FLONASE ALLERGY RELIEF [Concomitant]
     Active Substance: FLUTICASONE PROPIONATE
  31. ATORVASTATIN [Concomitant]
     Active Substance: ATORVASTATIN
  32. SODIUM CHLORIDE. [Concomitant]
     Active Substance: SODIUM CHLORIDE
  33. METOPROLOL SUCCINATE. [Concomitant]
     Active Substance: METOPROLOL SUCCINATE
  34. RITUXAN [Concomitant]
     Active Substance: RITUXIMAB
  35. TOUJEO [Concomitant]
     Active Substance: INSULIN GLARGINE
  36. FLUTICASONE PROPIONATE. [Concomitant]
     Active Substance: FLUTICASONE PROPIONATE
  37. HUMAN NORMAL IMMUNOGLOBULIN; LIQUID [Suspect]
     Active Substance: HUMAN IMMUNOGLOBULIN G
     Dosage: 45 GRAM, Q3WEEKS
     Route: 042
     Dates: start: 20130119
  38. VITAMIN D3 [Concomitant]
     Active Substance: CHOLECALCIFEROL
  39. DIPHENHYDRAMINE. [Concomitant]
     Active Substance: DIPHENHYDRAMINE
  40. HYDROCORTISONE. [Concomitant]
     Active Substance: HYDROCORTISONE
  41. MILK THISTLE [SILYBUM MARIANUM] [Concomitant]
     Active Substance: DIETARY SUPPLEMENT\HERBALS\MILK THISTLE

REACTIONS (9)
  - Appendicitis perforated [Unknown]
  - Ear infection [Unknown]
  - Lower respiratory tract infection [Recovering/Resolving]
  - Clostridium difficile infection [Unknown]
  - Appendicitis [Unknown]
  - Respiratory tract infection [Unknown]
  - Sinusitis [Unknown]
  - Pneumonia [Unknown]
  - Influenza like illness [Unknown]
